FAERS Safety Report 13412704 (Version 3)
Quarter: 2020Q1

REPORT INFORMATION
  Report Type: Spontaneous
  Country: US (occurrence: US)
  Receive Date: 20170406
  Receipt Date: 20200121
  Transmission Date: 20200409
  Serious: No
  Sender: FDA-Public Use
  Company Number: US-JNJFOC-20170309004

PATIENT
  Age: 21 Year
  Sex: Male

DRUGS (14)
  1. RISPERDAL [Suspect]
     Active Substance: RISPERIDONE
     Indication: SCHIZOPHRENIA
     Dosage: VARYING DOSES OF 0.5 MG, 1 MG, 2 MG AND 5 MG WITH VARYING FREQUENCIES
     Route: 048
     Dates: start: 20051128, end: 20121105
  2. RISPERDAL [Suspect]
     Active Substance: RISPERIDONE
     Indication: SCHIZOPHRENIA
     Route: 048
  3. RISPERDAL CONSTA [Suspect]
     Active Substance: RISPERIDONE
     Indication: SCHIZOPHRENIA
     Dosage: VARYING DOSES OF 12.5 MG, 25 MG, AND 37.5 MG
     Route: 030
     Dates: start: 20090324, end: 20140730
  4. RISPERDAL CONSTA [Suspect]
     Active Substance: RISPERIDONE
     Indication: AFFECTIVE DISORDER
     Route: 030
     Dates: end: 20160222
  5. RISPERDAL [Suspect]
     Active Substance: RISPERIDONE
     Indication: AFFECTIVE DISORDER
     Route: 048
     Dates: end: 20160222
  6. RISPERDAL [Suspect]
     Active Substance: RISPERIDONE
     Indication: AFFECTIVE DISORDER
     Route: 048
     Dates: start: 20090309, end: 20090319
  7. RISPERDAL CONSTA [Suspect]
     Active Substance: RISPERIDONE
     Indication: PSYCHOTIC DISORDER
  8. RISPERDAL M-TAB [Suspect]
     Active Substance: RISPERIDONE
     Indication: AFFECTIVE DISORDER
     Route: 048
     Dates: end: 20160222
  9. RISPERIDONE. [Suspect]
     Active Substance: RISPERIDONE
     Indication: AFFECTIVE DISORDER
     Route: 048
     Dates: end: 20160222
  10. RISPERDAL [Suspect]
     Active Substance: RISPERIDONE
     Route: 048
     Dates: end: 20160222
  11. RISPERIDONE. [Suspect]
     Active Substance: RISPERIDONE
     Indication: PRODUCT USED FOR UNKNOWN INDICATION
     Route: 048
  12. RISPERDAL M-TAB [Suspect]
     Active Substance: RISPERIDONE
     Indication: SCHIZOPHRENIA
     Route: 048
     Dates: start: 20051113, end: 20051116
  13. COGENTIN [Concomitant]
     Active Substance: BENZTROPINE MESYLATE
     Route: 048
  14. RISPERIDONE. [Suspect]
     Active Substance: RISPERIDONE
     Indication: SCHIZOPHRENIA
     Dosage: VARYING DOSES OF 0.5 MG, 1 MG, 2 MG, 3 MG AND 4 MG WITH VARYING FREQUENCIES
     Route: 048
     Dates: start: 20051123, end: 20151130

REACTIONS (7)
  - Musculoskeletal stiffness [Unknown]
  - Gynaecomastia [Not Recovered/Not Resolved]
  - Emotional distress [Unknown]
  - Apathy [Unknown]
  - Weight increased [Not Recovered/Not Resolved]
  - Joint stiffness [Unknown]
  - Asthenia [Unknown]

NARRATIVE: CASE EVENT DATE: 200912
